FAERS Safety Report 5623182-2 (Version None)
Quarter: 2008Q1

REPORT INFORMATION
  Report Type: 
  Country: None (occurrence: None)
  Receive Date: 20080207
  Receipt Date: 20080130
  Transmission Date: 20080703
  Serious: Yes (Other)
  Sender: FDA-Public Use
  Company Number: US-JNJFOC-20080100650

PATIENT
  Sex: Male
  Weight: 83.4619 kg

DRUGS (25)
  1. DACOGEN [Suspect]
     Indication: ACUTE MYELOID LEUKAEMIA
     Dosage: 40 MG, 1 IN 5 DAY, INTRAVENOUS
     Route: 042
     Dates: start: 20071112, end: 20071116
  2. VALPROIC ACID (VALPROIC AICD) [Concomitant]
  3. FOLIC ACID [Concomitant]
  4. ZOLOFT [Concomitant]
  5. MEGACE [Concomitant]
  6. ADVAIR DISKUS (SERETIDE MITE) [Concomitant]
  7. PROCRIT [Concomitant]
  8. CARAFATE [Concomitant]
  9. ZOCOR [Concomitant]
  10. SPIRIVA [Concomitant]
  11. LASIX [Concomitant]
  12. PREVACID [Concomitant]
  13. LEVAQUIN [Concomitant]
  14. BACTRIM [Concomitant]
  15. AVELOX [Concomitant]
  16. ZOVIRAX [Concomitant]
  17. RYTHMOL SR (PROPAFENONE) [Concomitant]
  18. DEPONIT (GLYCERYL TRINITRATE) [Concomitant]
  19. FLONASE [Concomitant]
  20. COREG [Concomitant]
  21. SYNTHROID [Concomitant]
  22. FLAGYL [Concomitant]
  23. LOPRESSOR [Concomitant]
  24. NEUPOGEN [Concomitant]
  25. DIFLUCAN [Concomitant]

REACTIONS (1)
  - EJECTION FRACTION DECREASED [None]
